FAERS Safety Report 5011136-9 (Version None)
Quarter: 2006Q2

REPORT INFORMATION
  Report Type: 
  Country: None (occurrence: None)
  Receive Date: 20060523
  Receipt Date: 20060522
  Transmission Date: 20061013
  Serious: Yes (Hospitalization)
  Sender: FDA-Public Use
  Company Number: FRWYE620315MAY06

PATIENT
  Age: 46 Year
  Sex: Male

DRUGS (8)
  1. EFFEXOR XR [Suspect]
     Indication: DEPRESSION
     Dosage: 75 MG TOTAL DAILY
     Route: 048
     Dates: end: 20060129
  2. EQUANIL [Suspect]
     Indication: ANXIETY
     Dosage: 400 MG TOTAL DAILY
     Route: 048
     Dates: start: 20050609, end: 20060129
  3. MEPRONIZINE                (ACEPROMETAZINE/MEPROBAMATE) [Suspect]
     Indication: SLEEP DISORDER
     Dosage: 1 TABLET 1X PER 1 DAY
     Route: 048
     Dates: start: 20050609, end: 20060128
  4. VALIUM [Suspect]
     Indication: ALCOHOLIC PSYCHOSIS
     Dosage: 5 MG 1X PER 1 DAY
     Route: 048
     Dates: start: 20060118, end: 20060128
  5. INEXIUM     (ESOMEORAZOLE) [Concomitant]
  6. BEVITINE     (THIAMINE HYDROCHLORIDE) [Concomitant]
  7. REVIA [Concomitant]
  8. ASPIRIN [Concomitant]

REACTIONS (3)
  - CEREBRAL ATROPHY [None]
  - DRUG INTERACTION [None]
  - GRAND MAL CONVULSION [None]
